FAERS Safety Report 10208525 (Version 2)
Quarter: 2014Q2

REPORT INFORMATION
  Report Type: Spontaneous
  Country: MY (occurrence: MY)
  Receive Date: 20140530
  Receipt Date: 20140602
  Transmission Date: 20141212
  Serious: Yes (Death)
  Sender: FDA-Public Use
  Company Number: MY-VIIV HEALTHCARE LIMITED-B0998269A

PATIENT
  Age: 43 Year
  Sex: Female

DRUGS (4)
  1. ZIAGEN [Suspect]
     Indication: RETROVIRAL INFECTION
     Dosage: 600MG PER DAY
     Route: 048
  2. LOPINAVIR + RITONAVIR [Concomitant]
  3. FLUVOXAMINE [Concomitant]
  4. LAMIVUDINE-HIV [Concomitant]

REACTIONS (7)
  - Pyrexia [Unknown]
  - Cough [Unknown]
  - Nausea [Unknown]
  - Vomiting [Unknown]
  - Asthenia [Unknown]
  - Chills [Unknown]
  - Death [Fatal]
